FAERS Safety Report 19754743 (Version 2)
Quarter: 2021Q3

REPORT INFORMATION
  Report Type: Spontaneous
  Country: US (occurrence: US)
  Receive Date: 20210827
  Receipt Date: 20210831
  Transmission Date: 20211014
  Serious: Yes (Hospitalization, Other)
  Sender: FDA-Public Use
  Company Number: US-EMCURE PHARMACEUTICALS LTD-2021-EPL-002753

PATIENT
  Age: 48 Year
  Sex: Female

DRUGS (8)
  1. RANITIDINE. [Concomitant]
     Active Substance: RANITIDINE
  2. LISINOPRIL. [Suspect]
     Active Substance: LISINOPRIL
     Indication: HYPERTENSION
     Dosage: 40 MILLIGRAM, 1 DOSE PER 24HR
  3. DULOXETINE. [Concomitant]
     Active Substance: DULOXETINE
  4. INSULIN GLARGINE [Concomitant]
     Active Substance: INSULIN GLARGINE
  5. METFORMIN [Concomitant]
     Active Substance: METFORMIN HYDROCHLORIDE
  6. ATORVASTATIN [Concomitant]
     Active Substance: ATORVASTATIN
  7. LITHIUM CARBONATE. [Interacting]
     Active Substance: LITHIUM CARBONATE
     Indication: BIPOLAR DISORDER
     Dosage: EVERY EVENING
     Route: 048
  8. BUPROPION. [Concomitant]
     Active Substance: BUPROPION

REACTIONS (11)
  - Nausea [Recovered/Resolved]
  - Acute kidney injury [Recovered/Resolved]
  - Fall [Recovered/Resolved]
  - Electrocardiogram abnormal [Recovered/Resolved]
  - Toxicity to various agents [Recovered/Resolved]
  - Hypovolaemia [Recovered/Resolved]
  - Tremor [Recovered/Resolved]
  - Drug interaction [Recovered/Resolved]
  - Dizziness [Recovered/Resolved]
  - Vomiting [Recovered/Resolved]
  - Confusional state [Recovered/Resolved]
